FAERS Safety Report 6162975-2 (Version None)
Quarter: 2009Q2

REPORT INFORMATION
  Report Type: 
  Country: None (occurrence: None)
  Receive Date: 20090420
  Receipt Date: 20090408
  Transmission Date: 20091009
  Serious: Yes (Death, Hospitalization)
  Sender: FDA-Public Use
  Company Number: 231743K09USA

PATIENT
  Age: 60 Year
  Sex: Female
  Weight: 73 kg

DRUGS (11)
  1. REBIF [Suspect]
     Indication: MULTIPLE SCLEROSIS
     Dosage: 44 MCG, 3 IN 1 WEEKS, SUBCUTANEOUS
     Route: 058
     Dates: start: 20040701, end: 20081126
  2. BACLOFEN [Concomitant]
  3. TOPROL-XL [Concomitant]
  4. VESICARE [Concomitant]
  5. CLONAZEPAM [Concomitant]
  6. EXELON [Concomitant]
  7. FLUOXETINE (FLUOXETINE /00724401/) [Concomitant]
  8. CALCIUM (CALCIUM-SANDOZ /00009901/) [Concomitant]
  9. FOSAMAX [Concomitant]
  10. PREDNISONE [Concomitant]
  11. TRIMETHOBENZAMIDE (TRIMETHOBENZAMIDE) [Concomitant]

REACTIONS (15)
  - ACUTE RESPIRATORY DISTRESS SYNDROME [None]
  - ANAEMIA [None]
  - ASPIRATION [None]
  - CARDIAC FAILURE CONGESTIVE [None]
  - FALL [None]
  - LACTIC ACIDOSIS [None]
  - MENINGITIS BACTERIAL [None]
  - MENTAL STATUS CHANGES [None]
  - PULMONARY OEDEMA [None]
  - RENAL FAILURE ACUTE [None]
  - RESPIRATORY FAILURE [None]
  - SEPTIC SHOCK [None]
  - TROPONIN I INCREASED [None]
  - UNRESPONSIVE TO STIMULI [None]
  - URINARY TRACT INFECTION [None]
